FAERS Safety Report 20377867 (Version 1)
Quarter: 2022Q1

REPORT INFORMATION
  Report Type: Report from Study
  Country: US (occurrence: US)
  Receive Date: 20220126
  Receipt Date: 20220126
  Transmission Date: 20220423
  Serious: Yes (Other)
  Sender: FDA-Public Use
  Company Number: US-JNJFOC-20220137632

PATIENT
  Age: 58 Year
  Sex: Female

DRUGS (2)
  1. RIVAROXABAN [Suspect]
     Active Substance: RIVAROXABAN
     Indication: Atrial fibrillation
     Route: 048
     Dates: start: 20161010
  2. RIVAROXABAN [Suspect]
     Active Substance: RIVAROXABAN
     Indication: Cerebrovascular accident prophylaxis

REACTIONS (2)
  - Myocardial infarction [Unknown]
  - Cerebrovascular accident [Unknown]
